FAERS Safety Report 17414059 (Version 2)
Quarter: 2020Q2

REPORT INFORMATION
  Report Type: Spontaneous
  Country: US (occurrence: US)
  Receive Date: 20200213
  Receipt Date: 20200507
  Transmission Date: 20200713
  Serious: No
  Sender: FDA-Public Use
  Company Number: US-PFIZER INC-2019263713

PATIENT
  Age: 77 Year
  Sex: Female
  Weight: 75.3 kg

DRUGS (5)
  1. PREMARIN [Suspect]
     Active Substance: ESTROGENS, CONJUGATED
     Dosage: UNK, DAILY (FOR 21 DAYS)
  2. PREMARIN [Suspect]
     Active Substance: ESTROGENS, CONJUGATED
     Dosage: UNK UNK, 2X/WEEK
  3. PREMARIN [Suspect]
     Active Substance: ESTROGENS, CONJUGATED
     Dosage: UNK, EVERY OTHER DAY
  4. PREMARIN [Suspect]
     Active Substance: ESTROGENS, CONJUGATED
     Indication: VAGINAL DISORDER
     Dosage: 1 G, AT BEDTIME (HS), 3X/WEEK (MON/WED/FRI)
     Route: 067
  5. HUMIRA [Concomitant]
     Active Substance: ADALIMUMAB
     Indication: RHEUMATOID ARTHRITIS
     Dosage: 0.8 ML, EVERY 14 DAYS

REACTIONS (4)
  - Condition aggravated [Unknown]
  - Vulvovaginal dryness [Unknown]
  - Intentional product misuse [Unknown]
  - Off label use [Unknown]
